FAERS Safety Report 8170401-7 (Version None)
Quarter: 2012Q1

REPORT INFORMATION
  Report Type: 
  Country: None (occurrence: None)
  Receive Date: 20120228
  Receipt Date: 20120214
  Transmission Date: 20120608
  Serious: Yes (Hospitalization, Other)
  Sender: FDA-Public Use
  Company Number: FR-ELI_LILLY_AND_COMPANY-FR201202003801

PATIENT
  Sex: Female
  Weight: 62 kg

DRUGS (5)
  1. XANAX [Concomitant]
     Indication: ANXIETY
     Dosage: 0.5 MG, TID
     Dates: start: 20110725
  2. ATARAX [Concomitant]
     Indication: ANXIETY
     Dosage: 100 MG, QD
     Dates: start: 20110824
  3. TRIMEPRAZINE TARTRATE [Concomitant]
     Indication: ANXIETY
     Dosage: 10 DF, QD
     Dates: start: 20110725
  4. ABILIFY [Concomitant]
     Indication: PSYCHOTIC DISORDER
     Dosage: 10 MG, QD
  5. ZYPREXA [Suspect]
     Indication: PSYCHOTIC DISORDER
     Dosage: 15 MG, QD
     Route: 048
     Dates: start: 20110903, end: 20110903

REACTIONS (6)
  - CONSTIPATION [None]
  - RENAL FAILURE [None]
  - DISORIENTATION [None]
  - NEUROLEPTIC MALIGNANT SYNDROME [None]
  - HYPERNATRAEMIA [None]
  - RHABDOMYOLYSIS [None]
